FAERS Safety Report 9112180 (Version 2)
Quarter: 2014Q1

REPORT INFORMATION
  Report Type: Spontaneous
  Country: US (occurrence: US)
  Receive Date: 20130219
  Receipt Date: 20140213
  Transmission Date: 20141002
  Serious: No
  Sender: FDA-Public Use
  Company Number: US-BRISTOL-MYERS SQUIBB COMPANY-17055740

PATIENT
  Age: 48 Year
  Sex: Female

DRUGS (1)
  1. ABATACEPT SUBQ INJECTION 125MG/ML [Suspect]
     Indication: RHEUMATOID ARTHRITIS
     Dosage: LT INJ:09-OCT-2012?LOT#2C76351,EXP:FEB2014?LT DOSE:22MAR13?INTERRUPTED:NOV12,RESTARTED:14MAR13
     Route: 058
     Dates: start: 20121002

REACTIONS (5)
  - Pyrexia [Unknown]
  - Migraine [Unknown]
  - Muscle tightness [Unknown]
  - Drug dose omission [Unknown]
  - Drug administration error [Unknown]
